FAERS Safety Report 21497854 (Version 1)
Quarter: 2022Q4

REPORT INFORMATION
  Report Type: Spontaneous
  Country: US (occurrence: US)
  Receive Date: 20221024
  Receipt Date: 20221024
  Transmission Date: 20230112
  Serious: Yes (Death, Hospitalization, Other)
  Sender: FDA-Public Use
  Company Number: US-BRISTOL-MYERS SQUIBB COMPANY-2022-125584

PATIENT
  Age: 64 Year
  Sex: Male

DRUGS (2)
  1. ONUREG [Suspect]
     Active Substance: AZACITIDINE
     Indication: Acute myeloid leukaemia
     Dosage: FREQ: ^QD ON DAYS 1-14 OF EACH 28-DAY TREATMENT CYCLE^
     Route: 048
  2. ONUREG [Suspect]
     Active Substance: AZACITIDINE
     Dosage: FREQ: QD, DAYS 1-14
     Route: 048

REACTIONS (6)
  - Neutropenia [Unknown]
  - Platelet count decreased [Unknown]
  - Cytopenia [Unknown]
  - Cardiac disorder [Fatal]
  - Infection [Fatal]
  - Complication associated with device [Unknown]
